FAERS Safety Report 5633938-8 (Version None)
Quarter: 2008Q1

REPORT INFORMATION
  Report Type: 
  Country: None (occurrence: None)
  Receive Date: 20080131
  Receipt Date: 20070509
  Transmission Date: 20080703
  Serious: Yes (Hospitalization)
  Sender: FDA-Public Use
  Company Number: 155011USA

PATIENT
  Age: 44 Year
  Sex: Female

DRUGS (2)
  1. COPAXONE [Suspect]
     Indication: MULTIPLE SCLEROSIS
     Dosage: 20 MG (20 MG,1 IN 1 D),SUBCUTANEOUS
     Route: 058
     Dates: start: 20020601, end: 20061105
  2. SERTRALINE [Suspect]

REACTIONS (1)
  - CEREBROVASCULAR ACCIDENT [None]
